FAERS Safety Report 12759977 (Version 1)
Quarter: 2016Q3

REPORT INFORMATION
  Report Type: Spontaneous
  Country: US (occurrence: US)
  Receive Date: 20160919
  Receipt Date: 20160919
  Transmission Date: 20161109
  Serious: No
  Sender: FDA-Public Use
  Company Number: US-PFIZER INC-2742449

PATIENT
  Age: 32 Year
  Sex: Female

DRUGS (1)
  1. MORPHINE SULFATE. [Suspect]
     Active Substance: MORPHINE SULFATE
     Indication: PAIN
     Dosage: 1 ML OVER 2 HOURS FREQ: AS NECESSARY
     Route: 030

REACTIONS (1)
  - Hypersensitivity [Recovering/Resolving]
